FAERS Safety Report 4848924-5 (Version None)
Quarter: 2005Q4

REPORT INFORMATION
  Report Type: 
  Country: None (occurrence: None)
  Receive Date: 20051121
  Receipt Date: 20050413
  Transmission Date: 20060501
  Serious: Yes (Other)
  Sender: FDA-Public Use
  Company Number: 20050400109

PATIENT
  Sex: Male

DRUGS (1)
  1. SUPRANE [Suspect]

REACTIONS (1)
  - HEPATOTOXICITY [None]
